FAERS Safety Report 6590076-8 (Version None)
Quarter: 2010Q1

REPORT INFORMATION
  Report Type: 
  Country: None (occurrence: None)
  Receive Date: 20100219
  Receipt Date: 20100216
  Transmission Date: 20100710
  Serious: Yes (Life-Threatening, Other)
  Sender: FDA-Public Use
  Company Number: PHHY2010DZ08970

PATIENT
  Age: 66 Year
  Sex: Male

DRUGS (2)
  1. FORADIL [Suspect]
     Indication: ASTHMA
     Dosage: 2 DF, DAILY
     Dates: start: 20090421, end: 20090503
  2. BECLOMETASONE [Concomitant]
     Dosage: 250 UG, UNK

REACTIONS (1)
  - ACUTE CORONARY SYNDROME [None]
